FAERS Safety Report 6980031-8 (Version None)
Quarter: 2010Q3

REPORT INFORMATION
  Report Type: 
  Country: None (occurrence: None)
  Receive Date: 20100914
  Receipt Date: 20100902
  Transmission Date: 20110219
  Serious: Yes (Hospitalization, Other)
  Sender: FDA-Public Use
  Company Number: US-PFIZER INC-2010081062

PATIENT
  Sex: Male

DRUGS (5)
  1. CHANTIX [Suspect]
     Indication: SMOKING CESSATION THERAPY
     Dosage: UNK
     Route: 048
     Dates: start: 20090917, end: 20091106
  2. SOMA [Concomitant]
     Indication: PAIN
     Dosage: UNK
     Dates: start: 20060101, end: 20100101
  3. VALIUM [Concomitant]
     Indication: PAIN
     Dosage: UNK
     Dates: start: 20060101, end: 20100101
  4. GABAPENTIN [Concomitant]
     Indication: NEUROPATHY PERIPHERAL
     Dosage: UNK
     Dates: start: 20060101
  5. KLONOPIN [Concomitant]
     Indication: SEDATIVE THERAPY
     Dosage: UNK
     Dates: start: 20080101, end: 20100101

REACTIONS (5)
  - ANXIETY [None]
  - CONVULSION [None]
  - HEAD INJURY [None]
  - LIMB INJURY [None]
  - POST-TRAUMATIC STRESS DISORDER [None]
